FAERS Safety Report 6746238-X (Version None)
Quarter: 2010Q2

REPORT INFORMATION
  Report Type: 
  Country: None (occurrence: None)
  Receive Date: 20100528
  Receipt Date: 20100105
  Transmission Date: 20101027
  Serious: No
  Sender: FDA-Public Use
  Company Number: US-ASTRAZENECA-2010SE00401

PATIENT
  Age: 38 Year
  Sex: Female
  Weight: 65.8 kg

DRUGS (5)
  1. PRILOSEC [Suspect]
     Route: 048
     Dates: end: 20091201
  2. ATENOLOL [Concomitant]
  3. KLONOPIN [Concomitant]
  4. PAXIL [Concomitant]
  5. FENERGEN [Concomitant]

REACTIONS (1)
  - BLOOD IRON DECREASED [None]
